FAERS Safety Report 18342353 (Version 1)
Quarter: 2020Q4

REPORT INFORMATION
  Report Type: Spontaneous
  Country: US (occurrence: US)
  Receive Date: 20201005
  Receipt Date: 20201005
  Transmission Date: 20210113
  Serious: Yes (Hospitalization, Other)
  Sender: FDA-Public Use
  Company Number: US-APOTEX-2020AP018995

PATIENT
  Sex: Male

DRUGS (2)
  1. METFORMIN [Suspect]
     Active Substance: METFORMIN HYDROCHLORIDE
     Dosage: 2000 MILLIGRAM, QD (AT 17 WEEKS GESTATION)
     Route: 015
  2. METFORMIN [Suspect]
     Active Substance: METFORMIN HYDROCHLORIDE
     Indication: GESTATIONAL DIABETES
     Dosage: 1000 MILLIGRAM, QD (AT 14 WEEK GESTATION)
     Route: 015

REACTIONS (3)
  - Foetal exposure during pregnancy [Unknown]
  - Condition aggravated [Recovering/Resolving]
  - Alveolar capillary dysplasia [Recovering/Resolving]
